FAERS Safety Report 10596038 (Version 6)
Quarter: 2017Q1

REPORT INFORMATION
  Report Type: Spontaneous
  Country: US (occurrence: US)
  Receive Date: 20141120
  Receipt Date: 20170228
  Transmission Date: 20170428
  Serious: No
  Sender: FDA-Public Use
  Company Number: US-GLAXOSMITHKLINE-A1090855A

PATIENT

DRUGS (5)
  1. WARFARIN [Concomitant]
     Active Substance: WARFARIN
  2. METOPROLOL. [Concomitant]
     Active Substance: METOPROLOL
  3. ASPIRIN. [Concomitant]
     Active Substance: ASPIRIN
  4. ADVAIR DISKUS [Suspect]
     Active Substance: FLUTICASONE PROPIONATE\SALMETEROL XINAFOATE
     Indication: ASTHMA
     Dosage: 1 PUFF(S), UNK
     Route: 055
     Dates: start: 2000
  5. ADVAIR DISKUS [Suspect]
     Active Substance: FLUTICASONE PROPIONATE\SALMETEROL XINAFOATE
     Dosage: 100/50 MCG

REACTIONS (9)
  - Asthma [Not Recovered/Not Resolved]
  - Cough [Unknown]
  - Product quality issue [Unknown]
  - Oral candidiasis [Not Recovered/Not Resolved]
  - Drug dose omission [Recovered/Resolved]
  - Device use error [Recovered/Resolved]
  - Dyspnoea [Unknown]
  - Secretion discharge [Unknown]
  - Confusional state [Unknown]

NARRATIVE: CASE EVENT DATE: 201409
